FAERS Safety Report 12569757 (Version 22)
Quarter: 2018Q1

REPORT INFORMATION
  Report Type: Report from Study
  Country: DE (occurrence: DE)
  Receive Date: 20160719
  Receipt Date: 20180312
  Transmission Date: 20180508
  Serious: Yes (Hospitalization)
  Sender: FDA-Public Use
  Company Number: DE-ROCHE-1780487

PATIENT
  Age: 79 Year
  Sex: Male
  Weight: 82 kg

DRUGS (26)
  1. PACLITAXEL. [Suspect]
     Active Substance: PACLITAXEL
     Indication: NON-SMALL CELL LUNG CANCER STAGE IV
     Dosage: UNIT DOSE PER PROTOCOL. THE MOST RECENT DOSE OF PACLITAXEL WAS 384 MG ON PRIOR TO DEHYDRATION AND DI
     Route: 042
     Dates: start: 20160614
  2. TRAMAL [Concomitant]
     Active Substance: TRAMADOL
     Indication: BACK PAIN
     Route: 065
     Dates: start: 20160613
  3. AMLODIPIN [Concomitant]
     Active Substance: AMLODIPINE BESYLATE
     Indication: HYPERTENSION
     Route: 065
     Dates: start: 20160620
  4. PANTOZOL [Concomitant]
     Active Substance: PANTOPRAZOLE SODIUM
     Indication: GASTRITIS
     Route: 065
     Dates: start: 201605
  5. GRANISETRON [Concomitant]
     Active Substance: GRANISETRON
     Indication: PROPHYLACTIC CHEMOTHERAPY
     Route: 065
     Dates: start: 20160614, end: 20160816
  6. CLEMASTIN [Concomitant]
     Active Substance: CLEMASTINE
     Indication: PROPHYLACTIC CHEMOTHERAPY
     Route: 065
     Dates: start: 20160614, end: 20160816
  7. CARMEN (GERMANY) [Concomitant]
     Active Substance: LERCANIDIPINE HYDROCHLORIDE
     Indication: HYPERTENSION
     Route: 065
     Dates: start: 20160620
  8. NOVALGIN (METAMIZOLE SODIUM) [Concomitant]
     Active Substance: METAMIZOLE SODIUM
     Indication: BACK PAIN
     Route: 065
     Dates: start: 20160621
  9. DEXAMETHASON [Concomitant]
     Active Substance: DEXAMETHASONE
     Indication: PROPHYLACTIC CHEMOTHERAPY
     Route: 065
     Dates: start: 20160614
  10. RANITIDIN [Concomitant]
     Active Substance: RANITIDINE HYDROCHLORIDE
     Indication: PROPHYLACTIC CHEMOTHERAPY
     Route: 065
     Dates: start: 20160614, end: 20160816
  11. KALINOR BRAUSE [Concomitant]
     Indication: HYPOKALAEMIA
     Route: 065
     Dates: start: 20160622
  12. HEPARIN [Concomitant]
     Active Substance: HEPARIN SODIUM
     Indication: RENAL FAILURE
     Route: 065
     Dates: start: 20160801, end: 20160922
  13. CLEXANE [Concomitant]
     Active Substance: ENOXAPARIN SODIUM
     Indication: THROMBOSIS
     Route: 065
     Dates: start: 20160922
  14. CARBOPLATIN. [Suspect]
     Active Substance: CARBOPLATIN
     Indication: NON-SMALL CELL LUNG CANCER STAGE IV
     Dosage: DOSE PER PROTOCOL: AUC = 6 MG/ML/MIN. THE MOST RECENT DOSE OF CARBOPLATIN WAS 408 MG PRIOR TO DIARRH
     Route: 042
     Dates: start: 20160614
  15. HYDROCHLOROTHIAZIDE. [Concomitant]
     Active Substance: HYDROCHLOROTHIAZIDE
     Indication: HYPERTENSION
     Route: 065
     Dates: start: 2014
  16. TAZOBAC [Concomitant]
     Active Substance: PIPERACILLIN SODIUM\TAZOBACTAM SODIUM
     Route: 065
     Dates: start: 20160803, end: 20160808
  17. TAZOBAC [Concomitant]
     Active Substance: PIPERACILLIN SODIUM\TAZOBACTAM SODIUM
     Route: 065
     Dates: start: 20160824, end: 20160905
  18. ATEZOLIZUMAB. [Suspect]
     Active Substance: ATEZOLIZUMAB
     Indication: NON-SMALL CELL LUNG CANCER STAGE IV
     Dosage: FIXED DOSE PER PROTOCOL. THE MOST RECENT DOSE OF ATEZOLIZUMAB 1200 MG PRIOR TO DIARRHEA WAS ON 14/JU
     Route: 042
     Dates: start: 20160614
  19. BEVACIZUMAB. [Suspect]
     Active Substance: BEVACIZUMAB
     Indication: NON-SMALL CELL LUNG CANCER STAGE IV
     Dosage: UNIT DOSE PER PROTOCOL. THE MOST RECENT DOSE OF BEVACIZUMAB WAS 1200 MG PRIOR TO DIARRHEA WAS TAKEN
     Route: 042
     Dates: start: 20160614
  20. TELMISARTAN. [Concomitant]
     Active Substance: TELMISARTAN
     Indication: HYPERTENSION
     Route: 065
     Dates: start: 2014
  21. GUTRON [Concomitant]
     Active Substance: MIDODRINE
     Route: 065
     Dates: start: 20160803
  22. HEPARIN [Concomitant]
     Active Substance: HEPARIN SODIUM
     Indication: THROMBOSIS PROPHYLAXIS
     Route: 058
  23. CELIPRO [Concomitant]
     Route: 065
     Dates: start: 20160922
  24. CELIPRO [Concomitant]
     Indication: HYPERTENSION
     Route: 065
     Dates: start: 2011
  25. ALLOPURINOL. [Concomitant]
     Active Substance: ALLOPURINOL
     Indication: GOUT
     Route: 065
     Dates: start: 2013, end: 20160802
  26. ARIXTRA [Concomitant]
     Active Substance: FONDAPARINUX SODIUM
     Route: 065
     Dates: start: 20160922

REACTIONS (3)
  - Intestinal haemorrhage [Recovered/Resolved]
  - Diarrhoea [Recovered/Resolved]
  - Colitis [Not Recovered/Not Resolved]

NARRATIVE: CASE EVENT DATE: 20160620
